FAERS Safety Report 8512730 (Version 3)
Quarter: 2013Q2

REPORT INFORMATION
  Report Type: Spontaneous
  Country: US (occurrence: US)
  Receive Date: 20120413
  Receipt Date: 20130617
  Transmission Date: 20140414
  Serious: Yes (Disabling, Other)
  Sender: FDA-Public Use
  Company Number: US-ASTRAZENECA-2011SE73956

PATIENT
  Age: 59 Year
  Sex: Female
  Weight: 78.9 kg

DRUGS (10)
  1. NEXIUM [Suspect]
     Indication: GASTROOESOPHAGEAL REFLUX DISEASE
     Route: 048
     Dates: start: 20120226
  2. PRILOSEC [Suspect]
     Indication: GASTROOESOPHAGEAL REFLUX DISEASE
     Route: 048
     Dates: start: 20101203
  3. PRILOSEC OTC [Suspect]
     Indication: GASTROOESOPHAGEAL REFLUX DISEASE
     Route: 048
     Dates: start: 20081202
  4. PREVACID [Concomitant]
     Indication: GASTROOESOPHAGEAL REFLUX DISEASE
  5. PROTONIX [Concomitant]
     Indication: GASTROOESOPHAGEAL REFLUX DISEASE
  6. TUMS [Concomitant]
  7. MYLANTA [Concomitant]
  8. RANITIDINE [Concomitant]
  9. NIFEDIPINE [Concomitant]
  10. VITAMINS [Concomitant]

REACTIONS (17)
  - Rheumatoid arthritis [Unknown]
  - Cerebrovascular accident [Unknown]
  - Osteoporosis [Unknown]
  - Weight decreased [Unknown]
  - Dyspepsia [Unknown]
  - Tremor [Unknown]
  - Foaming at mouth [Unknown]
  - Dyspepsia [Unknown]
  - Multiple fractures [Unknown]
  - Arthritis [Unknown]
  - Glaucoma [Unknown]
  - Palpitations [Unknown]
  - Bone pain [Unknown]
  - Vomiting [Unknown]
  - Malaise [Unknown]
  - Depression [Unknown]
  - Drug dose omission [Unknown]
